FAERS Safety Report 5179445-0 (Version None)
Quarter: 2006Q4

REPORT INFORMATION
  Report Type: 
  Country: None (occurrence: None)
  Receive Date: 20061211
  Receipt Date: 20061125
  Transmission Date: 20070319
  Serious: Yes (Hospitalization)
  Sender: FDA-Public Use
  Company Number: DE-2006-036727

PATIENT
  Sex: Female

DRUGS (1)
  1. BETAFERON [Suspect]
     Dosage: SUBCUTANEOUS
     Route: 058
     Dates: start: 20010101, end: 20060401

REACTIONS (1)
  - OSTEONECROSIS [None]
